FAERS Safety Report 23797319 (Version 1)
Quarter: 2024Q2

REPORT INFORMATION
  Report Type: Spontaneous
  Country: US (occurrence: US)
  Receive Date: 20240430
  Receipt Date: 20240430
  Transmission Date: 20240716
  Serious: Yes (Other)
  Sender: FDA-Public Use
  Company Number: US-RECKITT BENCKISER HEALTHCARE INT LIMITED-RB-088160-2024

PATIENT
  Sex: Female

DRUGS (2)
  1. BIOFREEZE [Suspect]
     Active Substance: MENTHOL
     Indication: Arthritis
     Dosage: UNK
     Route: 061
  2. BIOFREEZE [Suspect]
     Active Substance: MENTHOL
     Indication: Arthralgia

REACTIONS (1)
  - Malignant hypertension [Recovered/Resolved]

NARRATIVE: CASE EVENT DATE: 20240422
